FAERS Safety Report 10770960 (Version 1)
Quarter: 2015Q1

REPORT INFORMATION
  Report Type: Spontaneous
  Country: US (occurrence: US)
  Receive Date: 20150206
  Receipt Date: 20150206
  Transmission Date: 20150721
  Serious: Yes (Other)
  Sender: FDA-Public Use
  Company Number: US-TEVA-539176USA

PATIENT

DRUGS (1)
  1. COPAXONE [Suspect]
     Active Substance: GLATIRAMER ACETATE
     Indication: MULTIPLE SCLEROSIS
     Dosage: DOSE NOT PROVIDED/TAKES EVERY 2ND DAY

REACTIONS (14)
  - Optic neuritis [Unknown]
  - Eye injury [Unknown]
  - Cognitive disorder [Unknown]
  - Seizure [Unknown]
  - Multiple sclerosis [Unknown]
  - Peripheral coldness [Unknown]
  - Multiple sclerosis relapse [Unknown]
  - Asthenia [Unknown]
  - Paraesthesia [Unknown]
  - Visual acuity reduced [Unknown]
  - Headache [Unknown]
  - Drug hypersensitivity [Unknown]
  - Depression [Unknown]
  - Inappropriate schedule of drug administration [Unknown]
